FAERS Safety Report 7962827-9 (Version None)
Quarter: 2011Q4

REPORT INFORMATION
  Report Type: 
  Country: None (occurrence: None)
  Receive Date: 20111207
  Receipt Date: 20111130
  Transmission Date: 20120403
  Serious: Yes (Hospitalization, Other)
  Sender: FDA-Public Use
  Company Number: FR-ABBOTT-11P-056-0880200-00

PATIENT
  Sex: Male

DRUGS (2)
  1. COMBIVIR [Suspect]
     Indication: EXPOSURE VIA BLOOD
     Route: 048
     Dates: start: 20110723, end: 20110802
  2. KALETRA [Suspect]
     Indication: EXPOSURE VIA BLOOD
     Route: 048
     Dates: start: 20110723, end: 20110802

REACTIONS (3)
  - PAIN [None]
  - DYSSTASIA [None]
  - MUSCLE SPASMS [None]
